FAERS Safety Report 16475565 (Version 1)
Quarter: 2019Q2

REPORT INFORMATION
  Report Type: Spontaneous
  Country: FI (occurrence: FI)
  Receive Date: 20190625
  Receipt Date: 20190625
  Transmission Date: 20190711
  Serious: Yes (Death)
  Sender: FDA-Public Use
  Company Number: FI-BAYER-2019-118374

PATIENT
  Age: 87 Year
  Sex: Female

DRUGS (7)
  1. ONDANSETRON STADA [Concomitant]
     Dosage: UNK
     Route: 048
  2. AVELOX [Suspect]
     Active Substance: MOXIFLOXACIN HYDROCHLORIDE
     Indication: PNEUMONIA
     Dosage: UNK
     Route: 048
     Dates: start: 20190517, end: 20190523
  3. BISOPROLOL RATIOPHARM [Concomitant]
     Active Substance: BISOPROLOL
     Dosage: UNK
     Route: 048
  4. LEVETIRACETAM ORION [Concomitant]
     Dosage: UNK
     Route: 048
  5. FURESIS [Concomitant]
     Active Substance: FUROSEMIDE
     Dosage: UNK
     Route: 048
  6. METOCLOPRAMIDE ORION [Concomitant]
     Dosage: UNK
     Route: 048
  7. XARELTO [Concomitant]
     Active Substance: RIVAROXABAN
     Dosage: UNK

REACTIONS (9)
  - Muscular weakness [Fatal]
  - Abdominal discomfort [Fatal]
  - Nausea [Fatal]
  - Jaundice [Fatal]
  - Vomiting [Fatal]
  - Hepatitis [Fatal]
  - Nervous system disorder [Fatal]
  - Hepatomegaly [Fatal]
  - Dizziness [Fatal]

NARRATIVE: CASE EVENT DATE: 20190518
